FAERS Safety Report 20619140 (Version 3)
Quarter: 2022Q4

REPORT INFORMATION
  Report Type: Report from Study
  Country: US (occurrence: US)
  Receive Date: 20220322
  Receipt Date: 20221124
  Transmission Date: 20230113
  Serious: No
  Sender: FDA-Public Use
  Company Number: US-ACADIA PHARMACEUTICALS INC.-ACA-2022-PIM-000717

PATIENT
  Sex: Male
  Weight: 68 kg

DRUGS (15)
  1. NUPLAZID [Suspect]
     Active Substance: PIMAVANSERIN TARTRATE
     Indication: Parkinson^s disease psychosis
     Dosage: 34 MILLIGRAM, QD, IN EVENING
     Route: 048
     Dates: start: 202110, end: 202210
  2. NUPLAZID [Suspect]
     Active Substance: PIMAVANSERIN TARTRATE
     Indication: Hallucination
  3. NUPLAZID [Suspect]
     Active Substance: PIMAVANSERIN TARTRATE
     Indication: Delusion
  4. CARBIDOPA\LEVODOPA [Concomitant]
     Active Substance: CARBIDOPA\LEVODOPA
     Dosage: 25/250 MG QID
  5. RYTARY [Concomitant]
     Active Substance: CARBIDOPA\LEVODOPA
     Dosage: 60/1.25 MG/245 MG, THREE AT NIGHT, ER
  6. CELEBREX [Concomitant]
     Active Substance: CELECOXIB
     Dosage: QD
  7. FLUDROCORTISONE [Concomitant]
     Active Substance: FLUDROCORTISONE
     Dosage: BID
  8. LINZESS [Concomitant]
     Active Substance: LINACLOTIDE
     Indication: Constipation
     Dosage: 145 MCG
  9. STOOL SOFTENER (DOCUSATE) [Concomitant]
     Active Substance: DOCUSATE
     Indication: Constipation
  10. MOTEGRITY [Concomitant]
     Active Substance: PRUCALOPRIDE SUCCINATE
     Indication: Constipation
     Dosage: 2 MILLIGRAM
  11. XANAX [Concomitant]
     Active Substance: ALPRAZOLAM
     Dosage: 0.25 MG QHS (UP TO THREE A DAY)
     Dates: start: 202202
  12. MAGNESIUM OXIDE [Concomitant]
     Active Substance: MAGNESIUM OXIDE
     Dosage: 750 MILLIGRAM, QHS
  13. OMEPRAZOLE [Concomitant]
     Active Substance: OMEPRAZOLE
     Dosage: 40 MILLIGRAM, QHS
  14. MIRTAZAPINE [Concomitant]
     Active Substance: MIRTAZAPINE
     Dosage: 15 MILLIGRAM
  15. TOLTERODINE [Concomitant]
     Active Substance: TOLTERODINE
     Indication: Urinary incontinence
     Dosage: 4 MILLIGRAM, QD, ER

REACTIONS (8)
  - Product dose omission issue [Not Recovered/Not Resolved]
  - Hallucination [Not Recovered/Not Resolved]
  - Peripheral swelling [Not Recovered/Not Resolved]
  - Gait disturbance [Not Recovered/Not Resolved]
  - Confusional state [Not Recovered/Not Resolved]
  - Hallucination [Not Recovered/Not Resolved]
  - Constipation [Not Recovered/Not Resolved]
  - Peripheral swelling [Not Recovered/Not Resolved]

NARRATIVE: CASE EVENT DATE: 20210101
